FAERS Safety Report 5624785-1 (Version None)
Quarter: 2008Q1

REPORT INFORMATION
  Report Type: 
  Country: None (occurrence: None)
  Receive Date: 20080213
  Receipt Date: 20080128
  Transmission Date: 20080703
  Serious: No
  Sender: FDA-Public Use
  Company Number: US-BAYER-200812435NA

PATIENT
  Sex: Female

DRUGS (2)
  1. AVELOX [Suspect]
     Indication: INFECTION
     Dosage: TOTAL DAILY DOSE: 400 MG  UNIT DOSE: 400 MG
     Route: 048
     Dates: start: 20080115
  2. OXYGEN [Concomitant]

REACTIONS (4)
  - BURNING SENSATION [None]
  - COUGH [None]
  - DYSPNOEA [None]
  - UNEVALUABLE EVENT [None]
